FAERS Safety Report 4691306-X (Version None)
Quarter: 2005Q2

REPORT INFORMATION
  Report Type: 
  Country: None (occurrence: None)
  Receive Date: 20050610
  Receipt Date: 20050603
  Transmission Date: 20051028
  Serious: Yes (Other)
  Sender: FDA-Public Use
  Company Number: 2005061410

PATIENT
  Age: 60 Year
  Sex: Female

DRUGS (9)
  1. BEXTRA [Suspect]
     Indication: OSTEOARTHRITIS
     Dosage: 20 MG (20 MG, 1 IN 1 D), ORAL
     Route: 048
     Dates: end: 20050418
  2. CELEBREX [Suspect]
     Indication: OSTEOARTHRITIS
     Dosage: (1 IN 1 D), ORAL
     Route: 048
  3. LASIX [Concomitant]
  4. VASOTEC [Concomitant]
  5. REMERON [Concomitant]
  6. XANAX [Concomitant]
  7. PROZAC [Concomitant]
  8. FISH OIL (FISH OIL) [Concomitant]
  9. PRILOSEC [Concomitant]

REACTIONS (9)
  - BLISTER [None]
  - ERYTHEMA [None]
  - HEADACHE [None]
  - MEMORY IMPAIRMENT [None]
  - ORAL PAIN [None]
  - PAIN [None]
  - PANIC ATTACK [None]
  - SKIN DISCOLOURATION [None]
  - SKIN EXFOLIATION [None]
